FAERS Safety Report 5326749-4 (Version None)
Quarter: 2007Q2

REPORT INFORMATION
  Report Type: 
  Country: None (occurrence: None)
  Receive Date: 20070516
  Receipt Date: 20070507
  Transmission Date: 20071010
  Serious: Yes (Other)
  Sender: FDA-Public Use
  Company Number: JP-PFIZER INC-2007028410

PATIENT
  Sex: Male
  Weight: 41.3 kg

DRUGS (12)
  1. SULPERAZON [Suspect]
     Indication: PNEUMONIA
     Route: 042
     Dates: start: 20070403, end: 20070423
  2. VASOLAN [Concomitant]
  3. DIGOSIN [Concomitant]
  4. MAGNESIUM OXIDE [Concomitant]
     Route: 048
  5. VANCOMYCIN [Concomitant]
     Route: 042
     Dates: start: 20070313, end: 20070322
  6. FINIBAX [Concomitant]
     Route: 042
     Dates: start: 20070310, end: 20070322
  7. FLOMOX [Concomitant]
     Route: 048
     Dates: start: 20070323, end: 20070402
  8. CEFAZOLIN SODIUM [Concomitant]
     Route: 042
     Dates: start: 20070303, end: 20070304
  9. ROCEPHIN [Concomitant]
     Route: 042
     Dates: start: 20070305, end: 20070309
  10. DALACIN-S [Concomitant]
     Route: 042
     Dates: start: 20070305, end: 20070309
  11. ALEVIATIN [Concomitant]
     Dates: start: 20060701
  12. AZULENE DERIVATIVES [Concomitant]
     Dates: start: 20060701

REACTIONS (1)
  - PURPURA [None]
